FAERS Safety Report 5792167-8 (Version None)
Quarter: 2008Q2

REPORT INFORMATION
  Report Type: 
  Country: None (occurrence: None)
  Receive Date: 20080626
  Receipt Date: 20080618
  Transmission Date: 20081010
  Serious: Yes (Hospitalization)
  Sender: FDA-Public Use
  Company Number: CA-BOEHRINGER INGELHEIM GMBH, GERMANY-2008-CN-00277CN

PATIENT
  Sex: Female

DRUGS (7)
  1. MIRAPEX [Suspect]
     Indication: RESTLESS LEGS SYNDROME
     Dosage: 0.25 MG EACH NIGHT
     Dates: start: 20080401
  2. HYDREA [Concomitant]
     Indication: PLATELET COUNT INCREASED
  3. ASPIRIN [Concomitant]
  4. RAMIPRIL [Concomitant]
  5. ALTACE [Concomitant]
  6. CRESTOR [Concomitant]
  7. LOPRESSOR [Concomitant]

REACTIONS (3)
  - DYSGRAPHIA [None]
  - IMPAIRED DRIVING ABILITY [None]
  - SPEECH DISORDER [None]
